FAERS Safety Report 7536833-2 (Version None)
Quarter: 2011Q2

REPORT INFORMATION
  Report Type: 
  Country: None (occurrence: None)
  Receive Date: 20110608
  Receipt Date: 20110608
  Transmission Date: 20111010
  Serious: Yes (Other)
  Sender: FDA-Public Use
  Company Number: None

PATIENT
  Age: 52 Year
  Sex: Female
  Weight: 65.318 kg

DRUGS (1)
  1. SYNTHROID [Suspect]
     Indication: THYROIDECTOMY
     Dosage: ONCE DAILY PO
     Route: 048

REACTIONS (8)
  - INSOMNIA [None]
  - HYPERHIDROSIS [None]
  - BLOOD PRESSURE INCREASED [None]
  - HIRSUTISM [None]
  - MOOD ALTERED [None]
  - SWELLING [None]
  - MOOD SWINGS [None]
  - ASTHENIA [None]
